FAERS Safety Report 8078528-5 (Version None)
Quarter: 2012Q1

REPORT INFORMATION
  Report Type: 
  Country: None (occurrence: None)
  Receive Date: 20120127
  Receipt Date: 20110102
  Transmission Date: 20120608
  Serious: No
  Sender: FDA-Public Use
  Company Number: US-ABBOTT-11P-163-0694765-00

PATIENT
  Age: 55 Year
  Sex: Female

DRUGS (6)
  1. VITAMIN D [Concomitant]
     Indication: VITAMIN SUPPLEMENTATION
  2. HUMIRA [Suspect]
     Indication: CROHN'S DISEASE
     Dates: start: 20101206
  3. METOPROLOL TARTRATE [Concomitant]
     Indication: HYPERTENSION
     Dosage: 50 MG DAILY
  4. IRON [Concomitant]
     Indication: MINERAL SUPPLEMENTATION
  5. CALCIUM [Concomitant]
     Indication: MINERAL SUPPLEMENTATION
  6. TRICOR [Concomitant]
     Indication: BLOOD CHOLESTEROL ABNORMAL
     Dosage: 145 MG DAILY

REACTIONS (3)
  - THROAT IRRITATION [None]
  - RHINORRHOEA [None]
  - APHONIA [None]
